FAERS Safety Report 11274955 (Version 1)
Quarter: 2015Q3

REPORT INFORMATION
  Report Type: Spontaneous
  Country: US (occurrence: US)
  Receive Date: 20150716
  Receipt Date: 20150716
  Transmission Date: 20151125
  Serious: Yes (Hospitalization, Other)
  Sender: FDA-Public Use
  Company Number: US-PFIZER INC-2015235546

PATIENT
  Age: 59 Year
  Sex: Female
  Weight: 57 kg

DRUGS (1)
  1. CELEBREX [Suspect]
     Active Substance: CELECOXIB
     Indication: INFLAMMATION
     Dosage: 200 MG, EVERY 4 TO 6 HOURS AS NEEDED OR 4 TIMES A DAY AS NEEDED
     Dates: start: 2014, end: 201503

REACTIONS (11)
  - Gait disturbance [Recovering/Resolving]
  - Dehydration [Recovering/Resolving]
  - Dark circles under eyes [Recovering/Resolving]
  - Pain [Recovering/Resolving]
  - Infrequent bowel movements [Recovering/Resolving]
  - Weight decreased [Recovering/Resolving]
  - Intestinal obstruction [Recovered/Resolved]
  - Decreased appetite [Recovering/Resolving]
  - Asthenia [Recovering/Resolving]
  - Pallor [Recovering/Resolving]
  - Pyrexia [Recovered/Resolved]

NARRATIVE: CASE EVENT DATE: 201504
